FAERS Safety Report 9097891 (Version 3)
Quarter: 2013Q1

REPORT INFORMATION
  Report Type: Spontaneous
  Country: SE (occurrence: SE)
  Receive Date: 20130212
  Receipt Date: 20130325
  Transmission Date: 20140127
  Serious: Yes (Life-Threatening, Hospitalization, Other)
  Sender: FDA-Public Use
  Company Number: SE-BRISTOL-MYERS SQUIBB COMPANY-17346255

PATIENT
  Age: 21 Year
  Sex: Female

DRUGS (9)
  1. ABILIFY [Suspect]
     Dates: start: 20121218, end: 20121218
  2. CLOZAPINE [Suspect]
     Dates: start: 20121218, end: 20121218
  3. SERTRALINE [Suspect]
     Dates: start: 20121218, end: 20121218
  4. QUETIAPINE [Suspect]
     Dosage: ACTAVIS.
     Dates: start: 20121218, end: 20121218
  5. AZILECT [Suspect]
     Dates: start: 20121218, end: 20121218
  6. HYOSCYAMINE [Suspect]
     Dates: start: 20121218, end: 20121218
  7. IKTORIVIL [Suspect]
     Dates: start: 20121218, end: 20121218
  8. TEMESTA [Suspect]
     Dates: start: 20121218, end: 20121218
  9. NITRAZEPAM [Suspect]
     Dates: start: 20121218, end: 20121218

REACTIONS (3)
  - Toxicity to various agents [Unknown]
  - Somnolence [Unknown]
  - Mydriasis [None]
